FAERS Safety Report 6760303-2 (Version None)
Quarter: 2010Q2

REPORT INFORMATION
  Report Type: 
  Country: None (occurrence: None)
  Receive Date: 20100608
  Receipt Date: 20100528
  Transmission Date: 20101027
  Serious: Yes (Other)
  Sender: FDA-Public Use
  Company Number: US-SANOFI-AVENTIS-2010SA014898

PATIENT
  Age: 67 Year
  Sex: Female
  Weight: 65 kg

DRUGS (10)
  1. AMBIEN CR [Suspect]
     Indication: SLEEP DISORDER
     Route: 048
     Dates: start: 20090901, end: 20100305
  2. AMBIEN CR [Suspect]
     Route: 048
     Dates: end: 20090901
  3. PRILOSEC [Concomitant]
  4. CYMBALTA [Concomitant]
  5. LIPITOR [Concomitant]
     Route: 048
  6. SYNTHROID [Concomitant]
     Route: 048
  7. ALPRAZOLAM [Concomitant]
     Dosage: AS NEEDED
     Route: 048
  8. IBUPROFEN [Concomitant]
     Dosage: AS NEEDED
     Route: 048
  9. SKELAXIN [Concomitant]
  10. HYDROCODONE [Concomitant]
     Dosage: AS NEEDED

REACTIONS (7)
  - AMNESIA [None]
  - CONCUSSION [None]
  - FALL [None]
  - PAIN [None]
  - RADIUS FRACTURE [None]
  - SKIN LACERATION [None]
  - SOMNAMBULISM [None]
